FAERS Safety Report 5868350-X (Version None)
Quarter: 2008Q3

REPORT INFORMATION
  Report Type: 
  Country: None (occurrence: None)
  Receive Date: 20080902
  Receipt Date: 20080902
  Transmission Date: 20090109
  Serious: Yes (Hospitalization)
  Sender: FDA-Public Use
  Company Number: None

PATIENT
  Sex: Male

DRUGS (7)
  1. LEUKINE [Suspect]
     Indication: PROSTATE CANCER
     Dosage: 250MG/M2  QD X 14 DAYS + OFF FOR 14 DAYS  SQ
     Route: 058
     Dates: start: 20080811
  2. LUPRON [Concomitant]
  3. ALLOPURINOL [Concomitant]
  4. NEXIUM [Concomitant]
  5. CALCIUM SUPPLEMENTS [Concomitant]
  6. M.V.I. [Concomitant]
  7. FLOMAX [Concomitant]

REACTIONS (3)
  - CONFUSIONAL STATE [None]
  - DEHYDRATION [None]
  - DIARRHOEA [None]
